APPROVED DRUG PRODUCT: OXYMETAZOLINE HYDROCHLORIDE
Active Ingredient: OXYMETAZOLINE HYDROCHLORIDE
Strength: 1%
Dosage Form/Route: CREAM;TOPICAL
Application: A213584 | Product #001
Applicant: SUN PHARMA CANADA INC
Approved: Oct 4, 2021 | RLD: No | RS: No | Type: DISCN